FAERS Safety Report 7783824-2 (Version None)
Quarter: 2011Q3

REPORT INFORMATION
  Report Type: 
  Country: None (occurrence: None)
  Receive Date: 20110928
  Receipt Date: 20110916
  Transmission Date: 20111222
  Serious: No
  Sender: FDA-Public Use
  Company Number: US-BAYER-2011-008396

PATIENT
  Sex: Male
  Weight: 95 kg

DRUGS (4)
  1. DIPHENHYDRAMINE HYDROCHLORIDE [Concomitant]
  2. ASPIRIN [Concomitant]
  3. ALEVE (CAPLET) [Suspect]
     Indication: NASOPHARYNGITIS
     Route: 048
  4. ALEVE (CAPLET) [Suspect]
     Indication: MUSCULOSKELETAL PAIN

REACTIONS (1)
  - NO ADVERSE EVENT [None]
